FAERS Safety Report 17504574 (Version 8)
Quarter: 2022Q1

REPORT INFORMATION
  Report Type: Spontaneous
  Country: US (occurrence: US)
  Receive Date: 20200305
  Receipt Date: 20220324
  Transmission Date: 20220423
  Serious: No
  Sender: FDA-Public Use
  Company Number: US-PFIZER INC-2020098620

PATIENT
  Age: 77 Year
  Sex: Female
  Weight: 67.13 kg

DRUGS (5)
  1. TOVIAZ [Suspect]
     Active Substance: FESOTERODINE FUMARATE
     Indication: Bladder disorder
     Dosage: 4 MG, 1X/DAY
     Route: 048
     Dates: start: 2018
  2. TOVIAZ [Suspect]
     Active Substance: FESOTERODINE FUMARATE
     Dosage: 5 MG
  3. TOVIAZ [Suspect]
     Active Substance: FESOTERODINE FUMARATE
     Dosage: 4 MG, 2X/DAY (1/2 TABLET IN THE MORNING 1/2 IN THE EVENING BEFORE BED)
  4. TOVIAZ [Suspect]
     Active Substance: FESOTERODINE FUMARATE
     Dosage: 8 MG, 1X/DAY, (1 TAB PO DAILY)
     Route: 048
  5. ELIQUIS [Concomitant]
     Active Substance: APIXABAN
     Indication: Anticoagulant therapy
     Dosage: 5 MG, 2X/DAY (5MG PINK TABLET TWICE A DAY BY MOUTH)
     Route: 048
     Dates: start: 2017

REACTIONS (4)
  - Memory impairment [Unknown]
  - Drug ineffective [Unknown]
  - Wrong strength [Unknown]
  - Wrong technique in product usage process [Unknown]
